FAERS Safety Report 17598063 (Version 2)
Quarter: 2020Q2

REPORT INFORMATION
  Report Type: Spontaneous
  Country: US (occurrence: US)
  Receive Date: 20200330
  Receipt Date: 20200401
  Transmission Date: 20200713
  Serious: No
  Sender: FDA-Public Use
  Company Number: US-PFIZER INC-2020131709

PATIENT
  Age: 62 Year
  Sex: Female

DRUGS (4)
  1. ACTONEL [Suspect]
     Active Substance: RISEDRONATE SODIUM
  2. ACIPHEX [Suspect]
     Active Substance: RABEPRAZOLE SODIUM
  3. IBUPROFEN. [Suspect]
     Active Substance: IBUPROFEN
     Dosage: UNK
  4. CAFFEINE. [Suspect]
     Active Substance: CAFFEINE

REACTIONS (1)
  - Hypersensitivity [Unknown]
